FAERS Safety Report 9116610 (Version 1)
Quarter: 2013Q1

REPORT INFORMATION
  Report Type: Spontaneous
  Country: FR (occurrence: FR)
  Receive Date: 20130225
  Receipt Date: 20130225
  Transmission Date: 20140127
  Serious: Yes (Hospitalization, Other)
  Sender: FDA-Public Use
  Company Number: FR-PFIZER INC-2013062214

PATIENT
  Age: 40 Year
  Sex: Female

DRUGS (1)
  1. TRINORDIOL [Suspect]
     Indication: CONTRACEPTION
     Dosage: UNK
     Route: 048
     Dates: start: 201204, end: 201207

REACTIONS (1)
  - Mesenteric artery thrombosis [Recovering/Resolving]
